FAERS Safety Report 15564931 (Version 1)
Quarter: 2018Q4

REPORT INFORMATION
  Report Type: Spontaneous
  Country: US (occurrence: US)
  Receive Date: 20181030
  Receipt Date: 20181030
  Transmission Date: 20190205
  Serious: No
  Sender: FDA-Public Use
  Company Number: US-BAYER-2018-195756

PATIENT
  Age: 66 Year
  Sex: Male
  Weight: 149.98 kg

DRUGS (1)
  1. MIRALAX [Suspect]
     Active Substance: POLYETHYLENE GLYCOL 3350
     Indication: GASTROINTESTINAL DISORDER
     Dosage: 2 DF, QD I CAP IN THE MORNING AND 1 AT NIGHT.
     Route: 048
     Dates: start: 2018, end: 20181018

REACTIONS (1)
  - Expired product administered [Unknown]
